FAERS Safety Report 14694583 (Version 1)
Quarter: 2018Q1

REPORT INFORMATION
  Report Type: Spontaneous
  Country: US (occurrence: US)
  Receive Date: 20180329
  Receipt Date: 20180329
  Transmission Date: 20180509
  Serious: Yes (Hospitalization, Congenital Anomaly, Other)
  Sender: FDA-Public Use
  Company Number: US-WEST-WARD PHARMACEUTICALS CORP.-US-H14001-18-02185

PATIENT
  Age: 0 Day
  Sex: Male
  Weight: 2.27 kg

DRUGS (5)
  1. METHADONE [Suspect]
     Active Substance: METHADONE HYDROCHLORIDE
     Indication: INTERVERTEBRAL DISC PROTRUSION
  2. METHADONE [Suspect]
     Active Substance: METHADONE HYDROCHLORIDE
     Indication: ARTHRITIS
     Route: 064
     Dates: end: 20170325
  3. MORPHINE [Suspect]
     Active Substance: MORPHINE
     Indication: PRODUCT USED FOR UNKNOWN INDICATION
     Route: 065
  4. ABILIFY MAINTENA [Suspect]
     Active Substance: ARIPIPRAZOLE
     Indication: BIPOLAR DISORDER
     Route: 064
  5. KLONOPIN [Suspect]
     Active Substance: CLONAZEPAM
     Indication: ANXIETY
     Route: 064

REACTIONS (11)
  - Neurosurgery [Recovered/Resolved]
  - Jaundice [Unknown]
  - Craniosynostosis [Not Recovered/Not Resolved]
  - Hypoglycaemia neonatal [Unknown]
  - Continuous positive airway pressure [Recovered/Resolved]
  - Premature baby [Recovered/Resolved]
  - Strabismus [Unknown]
  - Foetal exposure during pregnancy [Recovered/Resolved]
  - Drug withdrawal syndrome neonatal [Unknown]
  - Auditory disorder [Unknown]
  - Transient tachypnoea of the newborn [Unknown]

NARRATIVE: CASE EVENT DATE: 20170325
